FAERS Safety Report 9650834 (Version 1)
Quarter: 2013Q4

REPORT INFORMATION
  Report Type: Spontaneous
  Country: FR (occurrence: FR)
  Receive Date: 20131029
  Receipt Date: 20131029
  Transmission Date: 20140711
  Serious: Yes (Death)
  Sender: FDA-Public Use
  Company Number: FR-JNJFOC-20131013925

PATIENT
  Age: 35 Year
  Sex: Male

DRUGS (7)
  1. HALDOL DECANOAS [Suspect]
     Indication: SCHIZOPHRENIA
     Route: 030
  2. TERCIAN [Suspect]
     Indication: SCHIZOPHRENIA
     Route: 065
     Dates: end: 20091115
  3. VALIUM [Concomitant]
     Indication: AGITATION
     Route: 030
     Dates: start: 20091114, end: 20091114
  4. LEPTICUR [Concomitant]
     Route: 065
  5. DEPAKOTE [Concomitant]
     Route: 065
  6. RIVOTRIL [Concomitant]
     Route: 065
  7. INIPOMP [Concomitant]
     Route: 065

REACTIONS (6)
  - Intestinal obstruction [Fatal]
  - Intestinal ischaemia [Fatal]
  - Hypothermia [Fatal]
  - Urinary retention [Fatal]
  - Somnolence [Fatal]
  - Multi-organ failure [Fatal]
